FAERS Safety Report 16105672 (Version 2)
Quarter: 2019Q2

REPORT INFORMATION
  Report Type: Other
  Country: FR (occurrence: FR)
  Receive Date: 20190322
  Receipt Date: 20190412
  Transmission Date: 20190711
  Serious: Yes (Death)
  Sender: FDA-Public Use
  Company Number: FR-APPCO PHARMA LLC-2064413

PATIENT
  Age: 48 Year
  Sex: Male

DRUGS (4)
  1. NOREPINEPHRINE. [Suspect]
     Active Substance: NOREPINEPHRINE
     Route: 065
  2. AMOXICILLIN/CLAVULANIC ACID [Suspect]
     Active Substance: AMOXICILLIN\CLAVULANIC ACID
     Route: 065
  3. CLINDAMYCIN PALMITATE HYDROCHLORIDE. [Suspect]
     Active Substance: CLINDAMYCIN PALMITATE HYDROCHLORIDE
     Indication: SEPTIC SHOCK
     Route: 065
  4. GENTAMICIN. [Suspect]
     Active Substance: GENTAMICIN
     Route: 065

REACTIONS (1)
  - Drug ineffective [Fatal]
